FAERS Safety Report 20354642 (Version 2)
Quarter: 2022Q1

REPORT INFORMATION
  Report Type: Spontaneous
  Country: US (occurrence: US)
  Receive Date: 20220120
  Receipt Date: 20220204
  Transmission Date: 20220423
  Serious: Yes (Other)
  Sender: FDA-Public Use
  Company Number: US-BEH-2022140572

PATIENT
  Age: 50 Year
  Sex: Male

DRUGS (2)
  1. PRIVIGEN [Suspect]
     Active Substance: HUMAN IMMUNOGLOBULIN G
     Indication: Immunodeficiency common variable
     Dosage: 70 GRAM
     Route: 042
     Dates: start: 20211230, end: 20211230
  2. PRIVIGEN [Suspect]
     Active Substance: HUMAN IMMUNOGLOBULIN G
     Indication: Immunodeficiency
     Dosage: 70 GRAM
     Route: 042
     Dates: start: 20211230, end: 20211230

REACTIONS (6)
  - Chest pain [Unknown]
  - Hypertension [Unknown]
  - Urticaria [Recovered/Resolved]
  - Erythema [Recovered/Resolved]
  - Pruritus [Recovered/Resolved]
  - Painful respiration [Unknown]

NARRATIVE: CASE EVENT DATE: 20211230
